FAERS Safety Report 26123430 (Version 1)
Quarter: 2025Q4

REPORT INFORMATION
  Report Type: Spontaneous
  Country: EU (occurrence: EU)
  Receive Date: 20251204
  Receipt Date: 20251204
  Transmission Date: 20260118
  Serious: Yes (Other)
  Sender: ALKEM
  Company Number: EU-ALKEM LABORATORIES LIMITED-BE-ALKEM-2025-12960

PATIENT
  Age: 46 Year
  Sex: Female

DRUGS (4)
  1. ITRACONAZOLE [Interacting]
     Active Substance: ITRACONAZOLE
     Indication: Bronchopulmonary aspergillosis
     Dosage: UNK
     Route: 065
  2. ITRACONAZOLE [Interacting]
     Active Substance: ITRACONAZOLE
     Indication: Aspergillus test positive
  3. DEFLAZACORT [Suspect]
     Active Substance: DEFLAZACORT
     Indication: Product used for unknown indication
     Dosage: UNK
     Route: 065
  4. FLUTICASONE PROPIONATE\SALMETEROL XINAFOATE [Interacting]
     Active Substance: FLUTICASONE PROPIONATE\SALMETEROL XINAFOATE
     Indication: Product used for unknown indication
     Dosage: UNK
     Route: 065

REACTIONS (3)
  - Rhabdomyolysis [Unknown]
  - Myopathy [Unknown]
  - Drug interaction [Unknown]
